FAERS Safety Report 25238747 (Version 2)
Quarter: 2025Q2

REPORT INFORMATION
  Report Type: Spontaneous
  Country: US (occurrence: US)
  Receive Date: 20250425
  Receipt Date: 20250526
  Transmission Date: 20250717
  Serious: No
  Sender: ELI LILLY AND COMPANY
  Company Number: US-ELI_LILLY_AND_COMPANY-US202504020343

PATIENT
  Age: 39 Year
  Sex: Female

DRUGS (13)
  1. ZEPBOUND [Suspect]
     Active Substance: TIRZEPATIDE
     Indication: Lymphoedema
     Route: 058
  2. ZEPBOUND [Suspect]
     Active Substance: TIRZEPATIDE
     Indication: Lymphoedema
     Route: 058
  3. ZEPBOUND [Suspect]
     Active Substance: TIRZEPATIDE
     Indication: Lymphoedema
     Route: 058
  4. ZEPBOUND [Suspect]
     Active Substance: TIRZEPATIDE
     Indication: Lymphoedema
     Route: 058
  5. ZEPBOUND [Suspect]
     Active Substance: TIRZEPATIDE
     Indication: Weight control
     Route: 058
     Dates: start: 20250521
  6. ZEPBOUND [Suspect]
     Active Substance: TIRZEPATIDE
     Indication: Weight control
     Route: 058
     Dates: start: 20250521
  7. ZEPBOUND [Suspect]
     Active Substance: TIRZEPATIDE
     Indication: Weight control
     Route: 058
     Dates: start: 20250521
  8. ZEPBOUND [Suspect]
     Active Substance: TIRZEPATIDE
     Indication: Weight control
     Route: 058
     Dates: start: 20250521
  9. ZEPBOUND [Suspect]
     Active Substance: TIRZEPATIDE
     Indication: Cerebrovascular accident
  10. ZEPBOUND [Suspect]
     Active Substance: TIRZEPATIDE
     Indication: Cerebrovascular accident
  11. ZEPBOUND [Suspect]
     Active Substance: TIRZEPATIDE
     Indication: Cerebrovascular accident
  12. ZEPBOUND [Suspect]
     Active Substance: TIRZEPATIDE
     Indication: Cerebrovascular accident
  13. ZEPBOUND [Suspect]
     Active Substance: TIRZEPATIDE
     Indication: Cerebrovascular accident

REACTIONS (2)
  - Incorrect dose administered [Unknown]
  - Incorrect dose administered [Unknown]

NARRATIVE: CASE EVENT DATE: 20250520
